FAERS Safety Report 18358337 (Version 1)
Quarter: 2020Q4

REPORT INFORMATION
  Report Type: Spontaneous
  Country: US (occurrence: US)
  Receive Date: 20201008
  Receipt Date: 20201008
  Transmission Date: 20210114
  Serious: No
  Sender: FDA-Public Use
  Company Number: US-TERSERA THERAPEUTICS LLC-2020TRS002420

PATIENT

DRUGS (2)
  1. XPOVIO [Suspect]
     Active Substance: SELINEXOR
     Indication: PRODUCT USED FOR UNKNOWN INDICATION
     Dosage: 80 MG, WEEKLY (MONDAY MORNINGS WITH FOOD) (FOR 3 ONCE WEEKS, 01 WEEK OFF)
     Route: 065
     Dates: start: 20200629
  2. VARUBI [Suspect]
     Active Substance: ROLAPITANT
     Indication: PLASMA CELL MYELOMA
     Dosage: 180 MG, EVERY 2 WEEKS (2 TABLETS OF 90 MG)
     Route: 048
     Dates: start: 20200629

REACTIONS (6)
  - Light chain analysis abnormal [Recovering/Resolving]
  - Flatulence [Recovering/Resolving]
  - Condition aggravated [Not Recovered/Not Resolved]
  - Abdominal distension [Recovering/Resolving]
  - Blood creatinine increased [Not Recovered/Not Resolved]
  - Arthropathy [Not Recovered/Not Resolved]

NARRATIVE: CASE EVENT DATE: 202008
